FAERS Safety Report 10339714 (Version 1)
Quarter: 2014Q3

REPORT INFORMATION
  Report Type: Spontaneous
  Country: US (occurrence: US)
  Receive Date: 20140724
  Receipt Date: 20140724
  Transmission Date: 20150326
  Serious: Yes (Hospitalization)
  Sender: FDA-Public Use
  Company Number: US-GLAXOSMITHKLINE-A1082184A

PATIENT
  Age: 57 Year
  Sex: Female

DRUGS (8)
  1. UNKNOWN MEDICATION [Concomitant]
     Active Substance: UNSPECIFIED INGREDIENT
  2. LOVENOX [Concomitant]
     Active Substance: ENOXAPARIN SODIUM
  3. VALIUM [Concomitant]
     Active Substance: DIAZEPAM
  4. DEMEROL [Concomitant]
     Active Substance: MEPERIDINE HYDROCHLORIDE
  5. TYLENOL [Concomitant]
     Active Substance: ACETAMINOPHEN
  6. PROCARDIA [Concomitant]
     Active Substance: NIFEDIPINE
  7. SUDAFED [Concomitant]
     Active Substance: PSEUDOEPHEDRINE HYDROCHLORIDE
  8. ADVAIR HFA [Suspect]
     Active Substance: FLUTICASONE PROPIONATE\SALMETEROL XINAFOATE
     Indication: ASTHMA
     Dosage: 1PUFF TWICE PER DAY
     Route: 055
     Dates: start: 2006

REACTIONS (8)
  - Large intestine perforation [Unknown]
  - Gallbladder operation [Unknown]
  - Sepsis [Unknown]
  - Abasia [Not Recovered/Not Resolved]
  - Fall [Unknown]
  - Spinal cord injury [Unknown]
  - Cystitis [Not Recovered/Not Resolved]
  - Bedridden [Not Recovered/Not Resolved]

NARRATIVE: CASE EVENT DATE: 201205
